FAERS Safety Report 9302962 (Version 2)
Quarter: 2013Q2

REPORT INFORMATION
  Report Type: Spontaneous
  Country: IT (occurrence: IT)
  Receive Date: 20130522
  Receipt Date: 20130621
  Transmission Date: 20140414
  Serious: Yes (Hospitalization)
  Sender: FDA-Public Use
  Company Number: IT-BRISTOL-MYERS SQUIBB COMPANY-18894964

PATIENT
  Age: 37 Year
  Sex: Male

DRUGS (9)
  1. COUMADIN TABS 5 MG [Suspect]
     Indication: ATRIAL FIBRILLATION
     Dosage: 1DF:1 TAB
     Route: 048
     Dates: start: 20121001, end: 20130125
  2. ACETYLSALICYLIC ACID [Suspect]
     Indication: MYOCARDIAL ISCHAEMIA
     Route: 048
     Dates: start: 20121001, end: 20130125
  3. RAMIPRIL [Concomitant]
     Indication: HYPERTENSION
  4. AMIODARONE HCL [Concomitant]
     Route: 048
  5. BISOPROLOL HEMIFUMARATE [Concomitant]
     Indication: HYPERTENSION
     Route: 048
  6. CIPROFLOXACIN [Concomitant]
     Indication: URINARY TRACT INFECTION
     Route: 048
  7. TAPENTADOL HYDROCHLORIDE [Concomitant]
     Dosage: 1DF:2 UNITS OF 50 MG TABS
     Route: 048
  8. LASITONE [Concomitant]
     Dosage: STRENGTH:LASITONE 25+37 MG CAPS
  9. LYRICA [Concomitant]
     Dosage: 1DF: 1 UNIT OF 75 MG CAPS
     Route: 048

REACTIONS (3)
  - Asthenia [Unknown]
  - Anaemia [Unknown]
  - Renal failure acute [Unknown]
